FAERS Safety Report 9875439 (Version 2)
Quarter: 2014Q1

REPORT INFORMATION
  Report Type: Other
  Country: US (occurrence: US)
  Receive Date: 20140206
  Receipt Date: 20140206
  Transmission Date: 20141002
  Serious: No
  Sender: FDA-Public Use
  Company Number: US-ACORDA-ACO_37130_2013

PATIENT
  Sex: Male

DRUGS (2)
  1. AMPYRA [Suspect]
     Indication: PRODUCT USED FOR UNKNOWN INDICATION
     Dosage: 10 MG, BID
     Route: 048
     Dates: start: 201304, end: 20130622
  2. AMPYRA [Suspect]
     Dosage: 10 MG, BID
     Dates: start: 20130701

REACTIONS (2)
  - Gait disturbance [Recovered/Resolved]
  - Drug dose omission [Unknown]
